FAERS Safety Report 25051784 (Version 2)
Quarter: 2025Q1

REPORT INFORMATION
  Report Type: Spontaneous
  Country: DE (occurrence: DE)
  Receive Date: 20250307
  Receipt Date: 20250324
  Transmission Date: 20250409
  Serious: No
  Sender: UCB
  Company Number: DE-UCBSA-2025012810

PATIENT
  Sex: Female

DRUGS (1)
  1. BIMEKIZUMAB [Suspect]
     Active Substance: BIMEKIZUMAB
     Indication: Hidradenitis

REACTIONS (2)
  - Hidradenitis [Unknown]
  - Papule [Unknown]
